FAERS Safety Report 10408624 (Version 11)
Quarter: 2015Q4

REPORT INFORMATION
  Report Type: Spontaneous
  Country: US (occurrence: US)
  Receive Date: 20140826
  Receipt Date: 20151014
  Transmission Date: 20160304
  Serious: Yes (Life-Threatening, Other)
  Sender: FDA-Public Use
  Company Number: US-ELI_LILLY_AND_COMPANY-US201204003416

PATIENT
  Sex: Male
  Weight: 73.74 kg

DRUGS (4)
  1. CYMBALTA [Suspect]
     Active Substance: DULOXETINE HYDROCHLORIDE
     Indication: PAIN
     Dosage: 30 MG, QD
     Dates: start: 20120209, end: 201203
  2. SYNTHROID [Concomitant]
     Active Substance: LEVOTHYROXINE SODIUM
     Indication: HYPOTHYROIDISM
     Dosage: 100 UG, QD
     Route: 048
  3. SYNTHROID [Concomitant]
     Active Substance: LEVOTHYROXINE SODIUM
     Dosage: 150 UG, UNKNOWN
     Route: 065
     Dates: start: 20120309
  4. CYMBALTA [Suspect]
     Active Substance: DULOXETINE HYDROCHLORIDE
     Indication: MUSCULOSKELETAL DISCOMFORT
     Dosage: 30 MG, QOD
     Dates: end: 20120306

REACTIONS (36)
  - Nightmare [Recovering/Resolving]
  - Palpitations [Recovering/Resolving]
  - Anxiety [Recovering/Resolving]
  - Sluggishness [Recovering/Resolving]
  - Stress [Recovering/Resolving]
  - Feeling jittery [Recovering/Resolving]
  - Drug withdrawal syndrome [Recovering/Resolving]
  - Small fibre neuropathy [Unknown]
  - Anxiety [Unknown]
  - Flushing [Recovering/Resolving]
  - Burning sensation [Recovering/Resolving]
  - Dizziness [Recovering/Resolving]
  - Dysphoria [Unknown]
  - Eye irritation [Recovering/Resolving]
  - Weight decreased [Recovering/Resolving]
  - Xerophthalmia [Recovering/Resolving]
  - Papule [Recovering/Resolving]
  - Acne [Unknown]
  - Skin burning sensation [Unknown]
  - Lethargy [Unknown]
  - Fatigue [Recovered/Resolved]
  - Paraesthesia [Recovering/Resolving]
  - Nervousness [Recovering/Resolving]
  - Hypoaesthesia [Unknown]
  - Eye pain [Recovering/Resolving]
  - Headache [Recovering/Resolving]
  - Pruritus generalised [Recovering/Resolving]
  - Blood thyroid stimulating hormone abnormal [Unknown]
  - Somnolence [Unknown]
  - Insomnia [Recovering/Resolving]
  - Skin irritation [Recovering/Resolving]
  - Psychotic disorder [Recovering/Resolving]
  - Rash [Recovering/Resolving]
  - Temperature difference of extremities [Recovering/Resolving]
  - Visual impairment [Recovering/Resolving]
  - Decreased interest [Unknown]
